FAERS Safety Report 4813927-3 (Version None)
Quarter: 2005Q4

REPORT INFORMATION
  Report Type: 
  Country: None (occurrence: None)
  Receive Date: 20051028
  Receipt Date: 20040921
  Transmission Date: 20060501
  Serious: No
  Sender: FDA-Public Use
  Company Number: US-GLAXOSMITHKLINE-A0526685A

PATIENT
  Age: 67 Year
  Sex: Female

DRUGS (7)
  1. SEREVENT [Suspect]
     Indication: CHRONIC OBSTRUCTIVE PULMONARY DISEASE
     Dosage: 2PUFF TWICE PER DAY
     Route: 055
     Dates: start: 20031101
  2. THEOPHYLLINE [Concomitant]
  3. FLOVENT [Concomitant]
  4. COMBIVENT [Concomitant]
  5. SINGULAIR [Concomitant]
  6. ANTIHYPERTENSIVE [Concomitant]
  7. LIPITOR [Concomitant]

REACTIONS (1)
  - TREMOR [None]
